FAERS Safety Report 18022706 (Version 5)
Quarter: 2025Q3

REPORT INFORMATION
  Report Type: Spontaneous
  Country: EU (occurrence: EU)
  Receive Date: 20200714
  Receipt Date: 20250923
  Transmission Date: 20251020
  Serious: Yes (Life-Threatening, Hospitalization, Disabling, Other)
  Sender: PFIZER
  Company Number: EU-PFIZER INC-2020267892

PATIENT
  Age: 61 Year

DRUGS (4)
  1. METHYLPREDNISOLONE SODIUM SUCCINATE [Suspect]
     Active Substance: METHYLPREDNISOLONE SODIUM SUCCINATE
     Indication: Orbital myositis
     Dosage: 1000 MG, 1X/DAY (FOR 6 MONTHS;5 BOLUS OF 3 DAYS)
     Route: 040
     Dates: start: 201601, end: 201607
  2. METHYLPREDNISOLONE SODIUM SUCCINATE [Suspect]
     Active Substance: METHYLPREDNISOLONE SODIUM SUCCINATE
     Dosage: 750 MG, 1X/DAY (FOR 6 MONTHS;5 BOLUS OF 3 DAYS)
     Route: 040
     Dates: start: 201601, end: 201607
  3. PREDNISONE [Suspect]
     Active Substance: PREDNISONE
     Indication: Orbital myositis
     Dosage: 20 MG, 1X/DAY (FOR 6 MONTHS)
     Route: 048
     Dates: start: 201601, end: 201607
  4. PREDNISONE [Suspect]
     Active Substance: PREDNISONE
     Dosage: 70 MG, 1X/DAY  (FOR 6 MONTHS)
     Route: 048
     Dates: start: 201601, end: 201607

REACTIONS (4)
  - Blindness [Not Recovered/Not Resolved]
  - Condition aggravated [Not Recovered/Not Resolved]
  - Cranial nerve disorder [Recovered/Resolved]
  - Off label use [Unknown]

NARRATIVE: CASE EVENT DATE: 20160101
